FAERS Safety Report 23499734 (Version 1)
Quarter: 2024Q1

REPORT INFORMATION
  Report Type: Spontaneous
  Country: US (occurrence: None)
  Receive Date: 20240208
  Receipt Date: 20240208
  Transmission Date: 20240409
  Serious: No
  Sender: FDA-Public Use
  Company Number: US-ROCHE-3310714

PATIENT
  Sex: Male
  Weight: 41.1 kg

DRUGS (3)
  1. NUTROPIN AQ [Suspect]
     Active Substance: SOMATROPIN
     Indication: Growth hormone deficiency
     Dosage: ONGOING : NO
     Route: 058
     Dates: start: 20230201
  2. NUTROPIN AQ [Suspect]
     Active Substance: SOMATROPIN
  3. ALBUTEROL [Concomitant]
     Active Substance: ALBUTEROL
     Indication: Wheezing
     Dosage: 2 PUFFS EVERY 6 HOURS AS NEEDED
     Route: 055
     Dates: start: 20210610

REACTIONS (3)
  - Pain in extremity [Unknown]
  - Immobile [Unknown]
  - Palpitations [Unknown]
